FAERS Safety Report 16287238 (Version 1)
Quarter: 2019Q2

REPORT INFORMATION
  Report Type: Report from Study
  Country: ES (occurrence: ES)
  Receive Date: 20190508
  Receipt Date: 20190508
  Transmission Date: 20190711
  Serious: Yes (Other)
  Sender: FDA-Public Use
  Company Number: PHHO2019ES004820

PATIENT
  Age: 63 Year
  Sex: Male
  Weight: 75 kg

DRUGS (2)
  1. PLACEBO [Suspect]
     Active Substance: UNSPECIFIED INGREDIENT
     Indication: SECONDARY PROGRESSIVE MULTIPLE SCLEROSIS
     Dosage: UNK
     Route: 048
     Dates: start: 20141023, end: 20160302
  2. BAF312 [Suspect]
     Active Substance: SIPONIMOD
     Indication: SECONDARY PROGRESSIVE MULTIPLE SCLEROSIS
     Dosage: UNK
     Route: 048
     Dates: start: 20160330

REACTIONS (1)
  - Malignant neoplasm of unknown primary site [Not Recovered/Not Resolved]

NARRATIVE: CASE EVENT DATE: 20190313
